FAERS Safety Report 15925398 (Version 2)
Quarter: 2019Q1

REPORT INFORMATION
  Report Type: Report from Study
  Country: BR (occurrence: BR)
  Receive Date: 20190206
  Receipt Date: 20190304
  Transmission Date: 20190417
  Serious: Yes (Hospitalization)
  Sender: FDA-Public Use
  Company Number: BR-SAKK-2019SA014769AA

PATIENT
  Sex: Female
  Weight: 52 kg

DRUGS (4)
  1. ATENOLOL. [Concomitant]
     Active Substance: ATENOLOL
     Indication: BLOOD PRESSURE ABNORMAL
     Dosage: UNK UNK, QD. IN MORNING
     Route: 048
     Dates: start: 2011
  2. INSULIN GLARGINE [Suspect]
     Active Substance: INSULIN GLARGINE
     Indication: DIABETES MELLITUS
     Dosage: 36 IU, QD(EVERY MORNING )
     Route: 058
     Dates: start: 2011
  3. APIDRA [Concomitant]
     Active Substance: INSULIN GLULISINE
     Indication: DIABETES MELLITUS
     Dosage: UNK
     Route: 058
     Dates: start: 2011
  4. LOSARTAN. [Concomitant]
     Active Substance: LOSARTAN
     Indication: BLOOD PRESSURE ABNORMAL
     Dosage: UNK UNK, QD. IN MORNING
     Route: 048
     Dates: start: 2011

REACTIONS (5)
  - Intervertebral disc protrusion [Recovering/Resolving]
  - Spinal disorder [Recovering/Resolving]
  - Hyperglycaemia [Not Recovered/Not Resolved]
  - Diabetic neuropathy [Recovering/Resolving]
  - Device issue [Unknown]
